FAERS Safety Report 9257225 (Version 1)
Quarter: 2013Q1

REPORT INFORMATION
  Report Type: Spontaneous
  Country: US (occurrence: None)
  Receive Date: 20121212
  Receipt Date: 20121212
  Transmission Date: 20140127
  Serious: No
  Sender: FDA-Public Use
  Company Number: 1208USA0008241

PATIENT
  Age: 58 Year
  Sex: Male
  Weight: 68 kg

DRUGS (3)
  1. PEG-INTRON [Suspect]
     Indication: HEPATITIS C
     Dates: start: 20120813
  2. RIBAVIRIN [Suspect]
     Indication: HEPATITIS C
     Dates: start: 20120813
  3. VICTRELIS [Suspect]
     Indication: HEPATITIS C
     Dates: start: 20120910

REACTIONS (7)
  - Injection site erythema [None]
  - Pain [None]
  - Injection site rash [None]
  - Weight decreased [None]
  - Pollakiuria [None]
  - Pyrexia [None]
  - Neutrophil count decreased [None]
